FAERS Safety Report 5050416-8 (Version None)
Quarter: 2006Q3

REPORT INFORMATION
  Report Type: 
  Country: None (occurrence: None)
  Receive Date: 20060707
  Receipt Date: 20060629
  Transmission Date: 20061208
  Serious: Yes (Hospitalization)
  Sender: FDA-Public Use
  Company Number: S06-FRA-02576-01

PATIENT
  Age: 54 Year
  Sex: Male

DRUGS (1)
  1. SEROPLEX (ESCITALOPRAM) [Suspect]
     Indication: DEPRESSION
     Dates: start: 20060516, end: 20060516

REACTIONS (13)
  - ABDOMINAL PAIN UPPER [None]
  - CLONUS [None]
  - CONVULSION [None]
  - DIZZINESS [None]
  - HOT FLUSH [None]
  - HYPERHIDROSIS [None]
  - LOSS OF CONSCIOUSNESS [None]
  - MALAISE [None]
  - NAUSEA [None]
  - SALIVARY HYPERSECRETION [None]
  - SPEECH DISORDER [None]
  - TACHYPNOEA [None]
  - TREMOR [None]
